FAERS Safety Report 6186437-1 (Version None)
Quarter: 2009Q2

REPORT INFORMATION
  Report Type: 
  Country: None (occurrence: None)
  Receive Date: 20090511
  Receipt Date: 20090427
  Transmission Date: 20091009
  Serious: Yes (Other)
  Sender: FDA-Public Use
  Company Number: FR-AMGEN-US343691

PATIENT
  Sex: Male
  Weight: 84 kg

DRUGS (3)
  1. ENBREL [Suspect]
     Indication: PSORIASIS
     Route: 058
     Dates: start: 20090220, end: 20090409
  2. ZOCOR [Concomitant]
     Dosage: 20 MG STRENGTH; DOSE UNKNOWN
     Route: 048
  3. KARDEGIC [Concomitant]
     Dosage: 75 MG STRENGTH; DOSE UNKNOWN
     Route: 048

REACTIONS (1)
  - PEMPHIGOID [None]
